FAERS Safety Report 16918703 (Version 1)
Quarter: 2019Q4

REPORT INFORMATION
  Report Type: Report from Study
  Country: None (occurrence: US)
  Receive Date: 20191015
  Receipt Date: 20191015
  Transmission Date: 20200122
  Serious: Yes (Hospitalization, Other)
  Sender: FDA-Public Use
  Company Number: US-ASTELLAS-2019US004021

PATIENT
  Sex: Female

DRUGS (2)
  1. ASP2215 [Suspect]
     Active Substance: GILTERITINIB
     Indication: ACUTE MYELOID LEUKAEMIA
     Route: 048
     Dates: start: 20181211
  2. ASP2215 [Suspect]
     Active Substance: GILTERITINIB
     Route: 048

REACTIONS (10)
  - Graft versus host disease [Recovered/Resolved]
  - Hypertension [Recovered/Resolved]
  - Menopause [Recovered/Resolved]
  - Tachycardia [Recovered/Resolved]
  - Night sweats [Recovered/Resolved]
  - Fatigue [Unknown]
  - Intentional dose omission [Unknown]
  - Gastric infection [Recovering/Resolving]
  - Dry mouth [Recovered/Resolved]
  - Emotional disorder [Recovered/Resolved]
